FAERS Safety Report 4988127-7 (Version None)
Quarter: 2006Q2

REPORT INFORMATION
  Report Type: 
  Country: None (occurrence: None)
  Receive Date: 20060501
  Receipt Date: 20051005
  Transmission Date: 20061013
  Serious: Yes (Hospitalization, Disabling)
  Sender: FDA-Public Use
  Company Number: US-MERCK-0510USA04318

PATIENT
  Age: 50 Year
  Sex: Male
  Weight: 86 kg

DRUGS (4)
  1. VIOXX [Suspect]
     Indication: ARTHRITIS
     Route: 048
     Dates: end: 20040101
  2. VIOXX [Suspect]
     Route: 048
  3. ZESTRIL [Concomitant]
     Route: 065
  4. PLENDIL [Concomitant]
     Route: 048

REACTIONS (19)
  - AORTIC ANEURYSM [None]
  - AORTIC DISSECTION [None]
  - AORTIC VALVE INCOMPETENCE [None]
  - ASTHENIA [None]
  - BRADYPHRENIA [None]
  - CARDIAC FAILURE [None]
  - CARDIAC TAMPONADE [None]
  - CHOLECYSTITIS [None]
  - COAGULOPATHY [None]
  - GASTROOESOPHAGEAL REFLUX DISEASE [None]
  - HEPATITIS B [None]
  - HYPERTENSION [None]
  - INSOMNIA [None]
  - NEPHROLITHIASIS [None]
  - PERICARDITIS [None]
  - PYREXIA [None]
  - RENAL DISORDER [None]
  - ROSACEA [None]
  - SEXUAL DYSFUNCTION [None]
